FAERS Safety Report 13637187 (Version 1)
Quarter: 2017Q2

REPORT INFORMATION
  Report Type: Spontaneous
  Country: US (occurrence: US)
  Receive Date: 20170609
  Receipt Date: 20170609
  Transmission Date: 20170830
  Serious: No
  Sender: FDA-Public Use
  Company Number: US-GLAXOSMITHKLINE-US2017088115

PATIENT
  Age: 75 Year

DRUGS (13)
  1. COQ10 [Concomitant]
     Active Substance: UBIDECARENONE
  2. ALLEGRA [Concomitant]
     Active Substance: FEXOFENADINE HYDROCHLORIDE
  3. ALBUTEROL NEBULIZER [Concomitant]
     Active Substance: ALBUTEROL
  4. AMLODIPINE [Concomitant]
     Active Substance: AMLODIPINE BESYLATE
  5. NADOLOL. [Concomitant]
     Active Substance: NADOLOL
  6. VAGIFEM [Concomitant]
     Active Substance: ESTRADIOL
  7. LIVALO [Concomitant]
     Active Substance: PITAVASTATIN CALCIUM
  8. SYNTHROID [Concomitant]
     Active Substance: LEVOTHYROXINE SODIUM
  9. FLONASE [Concomitant]
     Active Substance: FLUTICASONE PROPIONATE
  10. IRBESARTAN. [Concomitant]
     Active Substance: IRBESARTAN
  11. BREO ELLIPTA [Suspect]
     Active Substance: FLUTICASONE FUROATE\VILANTEROL TRIFENATATE
     Indication: BRONCHIECTASIS
     Dosage: 1 PUFF(S), QD
     Route: 055
     Dates: start: 20170512
  12. FISH OIL [Concomitant]
     Active Substance: FISH OIL
  13. METFORMIN [Concomitant]
     Active Substance: METFORMIN HYDROCHLORIDE

REACTIONS (2)
  - Product use in unapproved indication [Unknown]
  - Oral pain [Not Recovered/Not Resolved]

NARRATIVE: CASE EVENT DATE: 20170607
